FAERS Safety Report 25761115 (Version 1)
Quarter: 2025Q3

REPORT INFORMATION
  Report Type: Spontaneous
  Country: US (occurrence: None)
  Receive Date: 20250903
  Receipt Date: 20250903
  Transmission Date: 20251020
  Serious: No
  Sender: FDA-CTU
  Company Number: None

PATIENT
  Age: 65 Year
  Sex: Male

DRUGS (1)
  1. BALVERSA [Suspect]
     Active Substance: ERDAFITINIB
     Indication: Malignant neoplasm of renal pelvis
     Dosage: 4 MG DAILY ORAL ?
     Route: 048
     Dates: start: 20250610

REACTIONS (6)
  - Oedema [None]
  - Dehydration [None]
  - Blood pressure decreased [None]
  - Mouth ulceration [None]
  - Nausea [None]
  - Abdominal pain upper [None]

NARRATIVE: CASE EVENT DATE: 20250616
